FAERS Safety Report 12210223 (Version 1)
Quarter: 2016Q1

REPORT INFORMATION
  Report Type: Spontaneous
  Country: ES (occurrence: ES)
  Receive Date: 20160325
  Receipt Date: 20160325
  Transmission Date: 20160526
  Serious: Yes (Death, Life-Threatening)
  Sender: FDA-Public Use
  Company Number: ES-AUROBINDO-AUR-APL-2016-04118

PATIENT

DRUGS (3)
  1. CEFOTAXIME [Concomitant]
     Active Substance: CEFOTAXIME SODIUM
     Indication: PRODUCT USED FOR UNKNOWN INDICATION
     Route: 065
  2. VORICONAZOLE. [Suspect]
     Active Substance: VORICONAZOLE
     Indication: ASPERGILLUS INFECTION
     Dosage: 3 MG/KG, TWO TIMES A DAY
     Route: 042
  3. VANCOMYCIN [Suspect]
     Active Substance: VANCOMYCIN
     Indication: KLEBSIELLA INFECTION
     Route: 065

REACTIONS (5)
  - Renal impairment [Fatal]
  - Gastrointestinal perforation [Fatal]
  - Hepatotoxicity [Recovered/Resolved]
  - Premature baby [Fatal]
  - Bacterial sepsis [Fatal]
